FAERS Safety Report 6356748-5 (Version None)
Quarter: 2009Q3

REPORT INFORMATION
  Report Type: 
  Country: None (occurrence: None)
  Receive Date: 20090914
  Receipt Date: 20090914
  Transmission Date: 20100115
  Serious: Yes (Hospitalization, Other)
  Sender: FDA-Public Use
  Company Number: None

PATIENT
  Age: 10 Year
  Sex: Male

DRUGS (2)
  1. DEPAKOTE [Suspect]
     Indication: EPILEPSY
     Dosage: 250MG TID
  2. LAMICTAL [Concomitant]

REACTIONS (1)
  - NO ADVERSE EVENT [None]
